FAERS Safety Report 5420766-1 (Version None)
Quarter: 2007Q3

REPORT INFORMATION
  Report Type: 
  Country: None (occurrence: None)
  Receive Date: 20070816
  Receipt Date: 20070802
  Transmission Date: 20080115
  Serious: Yes (Death)
  Sender: FDA-Public Use
  Company Number: TNZIE200700082

PATIENT
  Age: 61 Year
  Sex: Male

DRUGS (15)
  1. INNOHEP [Suspect]
     Indication: PROPHYLAXIS
     Dates: start: 20070622, end: 20070709
  2. ZOTON (LANSOPRAZOLE) [Suspect]
     Dosage: 30 MG
     Dates: start: 20070528, end: 20070709
  3. VANCOMYCIN [Suspect]
     Indication: STAPHYLOCOCCAL INFECTION
     Dosage: 2 GM
     Dates: start: 20070529, end: 20070622
  4. OMEPRAZOLE [Suspect]
     Dosage: 40 MG
  5. ENOXAPARIN SODIUM [Suspect]
  6. DICLOFENAC SODIUM [Suspect]
     Dates: start: 20070620
  7. VELOSEF (CEFRADINE) [Suspect]
     Dates: start: 20070625, end: 20070725
  8. FUCIDINE CAP [Concomitant]
  9. FLAGYL [Concomitant]
  10. LINEZOLID [Concomitant]
  11. BACTRIM [Concomitant]
  12. ASPIRIN [Concomitant]
  13. VALSARTAN [Concomitant]
  14. INDAPAMIDE [Concomitant]
  15. BISOPROLOL FUMARATE [Concomitant]

REACTIONS (1)
  - TOXIC EPIDERMAL NECROLYSIS [None]
